FAERS Safety Report 17468099 (Version 3)
Quarter: 2020Q2

REPORT INFORMATION
  Report Type: Spontaneous
  Country: US (occurrence: US)
  Receive Date: 20200227
  Receipt Date: 20200413
  Transmission Date: 20200713
  Serious: Yes (Hospitalization, Other)
  Sender: FDA-Public Use
  Company Number: US-PFIZER INC-2020086817

PATIENT
  Age: 70 Year
  Sex: Female
  Weight: 63.95 kg

DRUGS (8)
  1. PRAVASTATIN. [Suspect]
     Active Substance: PRAVASTATIN
     Indication: HYPERLIPIDAEMIA
     Dosage: 20 MG, DAILY
     Route: 048
     Dates: start: 20200213, end: 20200214
  2. PREDNISONE. [Concomitant]
     Active Substance: PREDNISONE
     Dosage: 20 MG, DAILY
     Route: 048
  3. EUGENIA CARYOPHYLLUS [Concomitant]
     Dosage: UNK
  4. TYLENOL [Concomitant]
     Active Substance: ACETAMINOPHEN
     Indication: HEADACHE
     Dosage: 375 MG, AS NEEDED (P.R.N)
  5. TIMOLOL. [Concomitant]
     Active Substance: TIMOLOL
     Dosage: 1 GTT, 2X/DAY, (1 DROP TO THE LEFT EYE TWICE DAILY)
  6. KEYTRUDA [Suspect]
     Active Substance: PEMBROLIZUMAB
     Indication: METASTATIC RENAL CELL CARCINOMA
     Dosage: 200 MG, CYCLIC (EVERY 21 DAYS)
     Route: 042
     Dates: start: 20200129, end: 20200214
  7. DEXAMETHASONE 21 [Concomitant]
     Dosage: 8 MG, 3X/DAY (EVERY 8 HOURS )
     Route: 042
  8. INLYTA [Suspect]
     Active Substance: AXITINIB
     Indication: METASTATIC RENAL CELL CARCINOMA
     Dosage: 5 MG, 2X/DAY
     Route: 048
     Dates: start: 20200129, end: 20200214

REACTIONS (9)
  - Abdominal pain upper [Recovered/Resolved]
  - Hyperhidrosis [Unknown]
  - Pancreatitis acute [Recovered/Resolved]
  - Nausea [Recovered/Resolved]
  - Pancreatic mass [Unknown]
  - Product use in unapproved indication [Unknown]
  - Palpitations [Unknown]
  - Off label use [Unknown]
  - Neoplasm progression [Unknown]
